FAERS Safety Report 5670383-3 (Version None)
Quarter: 2008Q1

REPORT INFORMATION
  Report Type: 
  Country: None (occurrence: None)
  Receive Date: 20080314
  Receipt Date: 20080314
  Transmission Date: 20080703
  Serious: No
  Sender: FDA-Public Use
  Company Number: None

PATIENT
  Age: 50 Year
  Sex: Female
  Weight: 92.5338 kg

DRUGS (3)
  1. ZESTORETIC [Suspect]
     Indication: BLOOD PRESSURE MANAGEMENT
     Dosage: 1 TABLET TAKEN ORALLY PER DAY
     Route: 048
     Dates: start: 20080201, end: 20080312
  2. ZESTORETIC [Suspect]
     Indication: PROPHYLAXIS
     Dosage: 1 TABLET TAKEN ORALLY PER DAY
     Route: 048
     Dates: start: 20080201, end: 20080312
  3. PRINZIDE [Suspect]

REACTIONS (14)
  - ABDOMINAL DISTENSION [None]
  - ABDOMINAL PAIN UPPER [None]
  - DEPRESSION [None]
  - FEELING HOT [None]
  - INSOMNIA [None]
  - IRRITABILITY [None]
  - MIDDLE INSOMNIA [None]
  - MUSCLE SPASMS [None]
  - OEDEMA PERIPHERAL [None]
  - PAIN IN EXTREMITY [None]
  - POOR QUALITY SLEEP [None]
  - PYREXIA [None]
  - SWELLING FACE [None]
  - WEIGHT INCREASED [None]
